FAERS Safety Report 7829278-9 (Version None)
Quarter: 2011Q4

REPORT INFORMATION
  Report Type: 
  Country: None (occurrence: None)
  Receive Date: 20111020
  Receipt Date: 20111007
  Transmission Date: 20120403
  Serious: Yes (Hospitalization, Other)
  Sender: FDA-Public Use
  Company Number: US-ELI_LILLY_AND_COMPANY-US201012006360

PATIENT
  Sex: Female

DRUGS (32)
  1. FORTEO [Suspect]
     Dosage: 20 UG, QD
  2. CELEXA [Concomitant]
  3. VITRON C [Concomitant]
     Indication: ANAEMIA
  4. NASONEX [Concomitant]
     Dosage: UNK, QID
  5. ASPIRIN [Concomitant]
     Dosage: 81 MG, UNK
  6. POTASSIUM CHLORIDE [Concomitant]
     Dosage: 20 MEQ, BID
  7. FORTEO [Suspect]
     Dosage: 20 UG, QD
  8. ZOCOR [Concomitant]
  9. CETIRIZINE HCL [Concomitant]
     Dosage: 10 MG, UNK
  10. XOPENEX [Concomitant]
     Dosage: UNK, PRN
  11. POLYGAM S/D [Concomitant]
  12. FORTEO [Suspect]
     Indication: OSTEOPOROSIS
     Dosage: 20 UG, QD
     Dates: start: 20100614
  13. IMITREX [Concomitant]
     Dosage: UNK, PRN
  14. VICODIN [Concomitant]
  15. DICYCLOMINE [Concomitant]
  16. LOVENOX [Concomitant]
  17. CELEBREX [Concomitant]
     Dosage: 200 MG, UNK
  18. SPIRONOLACTONE W/ HYDROCHLOROTHIAZIDE [Concomitant]
     Dosage: 25 MG, UNK
  19. NEXIUM [Concomitant]
     Dosage: 40 MG, BID
  20. MELATONIN [Concomitant]
  21. ZANAFLEX [Concomitant]
     Dosage: 6 MG, TID
  22. FLOVENT [Concomitant]
     Dosage: UNK, BID
  23. FORTEO [Suspect]
     Dosage: 20 UG, QD
  24. FORTEO [Suspect]
     Dosage: 20 UG, QD
  25. ASPIRIN [Concomitant]
     Dosage: 81 UNK, UNK
  26. ADVAIR DISKUS 100/50 [Concomitant]
  27. LOTEMAX [Concomitant]
     Dosage: 0.5 %, BID
  28. FORTEO [Suspect]
     Dosage: 20 UG, QD
  29. CYMBALTA [Concomitant]
     Dosage: 60 MG, QD
  30. KLONOPIN [Concomitant]
     Dosage: 2 MG, QD
  31. SYNTHROID [Concomitant]
     Dosage: UNK, QD
  32. COZAAR [Concomitant]
     Dosage: 50 MG, QD

REACTIONS (10)
  - DEVICE MISUSE [None]
  - INJECTION SITE HAEMATOMA [None]
  - BACK PAIN [None]
  - KNEE ARTHROPLASTY [None]
  - NASOPHARYNGITIS [None]
  - GAIT DISTURBANCE [None]
  - FATIGUE [None]
  - BACK DISORDER [None]
  - BONE OPERATION [None]
  - BURSITIS [None]
